FAERS Safety Report 7786896-4 (Version None)
Quarter: 2011Q3

REPORT INFORMATION
  Report Type: 
  Country: None (occurrence: None)
  Receive Date: 20110929
  Receipt Date: 20110919
  Transmission Date: 20111222
  Serious: Yes (Death, Other)
  Sender: FDA-Public Use
  Company Number: KR-BRISTOL-MYERS SQUIBB COMPANY-16071110

PATIENT
  Age: 68 Year
  Sex: Male

DRUGS (3)
  1. IFOSFAMIDE [Suspect]
     Indication: LEIOMYOSARCOMA
     Dosage: 1DF:2 G/M2 IN 1L OF 5% DEXTROSE IN WATER(LOADING DOSE) TOTAL DOSE:14G/M2
  2. GRANULOCYTE CSF [Suspect]
     Indication: LEIOMYOSARCOMA
  3. MESNA [Suspect]
     Indication: LEIOMYOSARCOMA

REACTIONS (4)
  - RENAL FAILURE ACUTE [None]
  - SEPSIS [None]
  - ENCEPHALOPATHY [None]
  - METABOLIC ACIDOSIS [None]
